FAERS Safety Report 24704657 (Version 3)
Quarter: 2025Q1

REPORT INFORMATION
  Report Type: Spontaneous
  Country: JP (occurrence: JP)
  Receive Date: 20241206
  Receipt Date: 20250124
  Transmission Date: 20250409
  Serious: Yes (Life-Threatening, Other)
  Sender: HRA PHARMA
  Company Number: JP-ORG100014127-2024000340

PATIENT
  Age: 73 Year
  Sex: Male
  Weight: 74.7 kg

DRUGS (15)
  1. METYRAPONE [Suspect]
     Active Substance: METYRAPONE
     Indication: Cushing^s syndrome
     Dosage: 500MG, 4TIMES/DAY
     Route: 048
     Dates: start: 20240419, end: 20240420
  2. METYRAPONE [Suspect]
     Active Substance: METYRAPONE
     Indication: Cushing^s syndrome
     Dosage: 750MG, 4TIMES/DAY
     Route: 048
     Dates: start: 20240421, end: 20240424
  3. METYRAPONE [Suspect]
     Active Substance: METYRAPONE
     Indication: Cushing^s syndrome
     Dosage: 750MG, 3TIMES/DAY
     Route: 048
     Dates: start: 20240425, end: 20240426
  4. METYRAPONE [Suspect]
     Active Substance: METYRAPONE
     Indication: Cushing^s syndrome
     Dosage: 750MG, 2TIMES/DAY
     Route: 048
     Dates: start: 20240427, end: 20240430
  5. HYDROCORTISONE [Concomitant]
     Active Substance: HYDROCORTISONE
     Indication: Product used for unknown indication
  6. HYDROCORTISONE [Concomitant]
     Active Substance: HYDROCORTISONE
     Indication: Product used for unknown indication
  7. SULFAMETHOXAZOLE\TRIMETHOPRIM [Concomitant]
     Active Substance: SULFAMETHOXAZOLE\TRIMETHOPRIM
     Indication: Infection prophylaxis
     Dates: start: 20240419
  8. CORTRIL [Concomitant]
     Active Substance: HYDROCORTISONE
     Indication: Adrenocortical steroid therapy
     Dates: start: 20240419, end: 20240424
  9. SOLU-CORTEF [Concomitant]
     Active Substance: HYDROCORTISONE SODIUM SUCCINATE
     Indication: Adrenocortical steroid therapy
     Dates: start: 20240420, end: 20240420
  10. SOLU-CORTEF [Concomitant]
     Active Substance: HYDROCORTISONE SODIUM SUCCINATE
     Indication: Adrenocortical steroid therapy
     Dates: start: 20240421, end: 20240424
  11. SOLU-CORTEF [Concomitant]
     Active Substance: HYDROCORTISONE SODIUM SUCCINATE
     Indication: Adrenocortical steroid therapy
     Dates: start: 20240425
  12. VANCOMYCIN HYDROCHLORIDE [Concomitant]
     Active Substance: VANCOMYCIN HYDROCHLORIDE
     Indication: Infection prophylaxis
     Dates: start: 20240419, end: 20240419
  13. VANMYCIN [Concomitant]
     Indication: Infection prophylaxis
     Dates: start: 20240420, end: 20240422
  14. VANMYCIN [Concomitant]
     Indication: Infection prophylaxis
     Dates: start: 20240423
  15. MEROPENEM [Concomitant]
     Active Substance: MEROPENEM
     Indication: Infection prophylaxis
     Dates: start: 20240420

REACTIONS (3)
  - Sepsis [Recovered/Resolved]
  - Disseminated intravascular coagulation [Recovered/Resolved]
  - Pancytopenia [Recovered/Resolved]

NARRATIVE: CASE EVENT DATE: 20240421
